FAERS Safety Report 21101788 (Version 1)
Quarter: 2022Q3

REPORT INFORMATION
  Report Type: Report from Study
  Country: US (occurrence: US)
  Receive Date: 20220719
  Receipt Date: 20220719
  Transmission Date: 20221027
  Serious: Yes (Hospitalization)
  Sender: FDA-Public Use
  Company Number: US-ABBVIE-22K-163-4472494-00

PATIENT
  Sex: Male

DRUGS (1)
  1. SKYRIZI [Suspect]
     Active Substance: RISANKIZUMAB-RZAA
     Indication: Psoriasis
     Route: 058
     Dates: start: 202112

REACTIONS (9)
  - General physical health deterioration [Recovering/Resolving]
  - Medical induction of coma [Recovering/Resolving]
  - Mental disorder [Unknown]
  - Skin exfoliation [Unknown]
  - Generalised oedema [Unknown]
  - Vomiting [Unknown]
  - Dental care [Unknown]
  - Erythema [Recovered/Resolved]
  - Psoriasis [Unknown]
